FAERS Safety Report 4355863-5 (Version None)
Quarter: 2004Q2

REPORT INFORMATION
  Report Type: 
  Country: None (occurrence: None)
  Receive Date: 20040511
  Receipt Date: 20040505
  Transmission Date: 20050107
  Serious: Yes (Other)
  Sender: FDA-Public Use
  Company Number: 200414761GDDC

PATIENT
  Sex: Female

DRUGS (2)
  1. GAVISCON [Suspect]
     Indication: HIATUS HERNIA
     Dosage: DOSE: UNK
     Route: 048
  2. THYROXINE SODIUM [Concomitant]
     Dosage: DOSE: UNK

REACTIONS (1)
  - GALLBLADDER OPERATION [None]
